FAERS Safety Report 8417988-4 (Version None)
Quarter: 2012Q2

REPORT INFORMATION
  Report Type: 
  Country: None (occurrence: None)
  Receive Date: 20120531
  Receipt Date: 20120515
  Transmission Date: 20120825
  Serious: Yes (Other)
  Sender: FDA-Public Use
  Company Number: VAL_00766_2012

PATIENT
  Sex: Female
  Weight: 108.8633 kg

DRUGS (16)
  1. SALSALATE [Suspect]
     Indication: ARTHRITIS
     Dosage: (1500 MG BID)
  2. SALSALATE [Suspect]
     Indication: PAIN
     Dosage: (1500 MG BID)
  3. METFORMIN HCL [Suspect]
     Indication: DIABETES MELLITUS
     Dosage: (50 MG QD)
  4. ASCORBIC ACID W/VITAMIN D NOS [Suspect]
     Indication: PRODUCT USED FOR UNKNOWN INDICATION
     Dosage: (DF)
  5. LIPITOR [Suspect]
     Indication: BLOOD CHOLESTEROL INCREASED
     Dosage: (40 MG QD ORAL)
     Route: 048
  6. SULFASALAZINE [Suspect]
     Indication: ARTHRITIS
     Dosage: (100 MG BID)
  7. SULFASALAZINE [Suspect]
     Indication: FIBROMYALGIA
     Dosage: (100 MG BID)
  8. LYRICA [Suspect]
     Indication: FIBROMYALGIA
     Dosage: (1500 MG BID ORAL), (75 MG BID ORAL)
     Route: 048
  9. CYMBALTA [Suspect]
     Indication: DEPRESSION
     Dosage: (DF)
  10. CITALOPRAM HYDROBROMIDE [Suspect]
     Indication: DEPRESSION
     Dosage: (DF)
  11. LEVOXYL [Suspect]
     Indication: THYROID THERAPY
     Dosage: (100 UG QD)
  12. LOMOTIL [Suspect]
     Indication: COLITIS
     Dosage: (0.25 MG TID)
     Dates: start: 20110201
  13. HYDROCHLOROTHIAZIDE [Suspect]
     Indication: OEDEMA PERIPHERAL
     Dosage: (25 MG QD)
  14. HYDROCHLOROTHIAZIDE [Suspect]
     Indication: CARDIAC DISORDER
     Dosage: (25 MG QD)
  15. KLOR-CON [Suspect]
     Indication: BLOOD POTASSIUM DECREASED
     Dosage: (20 MEQ QD) , (10 MEQ QD)
  16. CALCITRIOL [Suspect]
     Indication: PRODUCT USED FOR UNKNOWN INDICATION
     Dosage: (DF)

REACTIONS (4)
  - DIABETES MELLITUS [None]
  - DIZZINESS [None]
  - THYROID CANCER [None]
  - BLOOD POTASSIUM DECREASED [None]
